FAERS Safety Report 4899223-7 (Version None)
Quarter: 2006Q1

REPORT INFORMATION
  Report Type: 
  Country: None (occurrence: None)
  Receive Date: 20060202
  Receipt Date: 20060124
  Transmission Date: 20060701
  Serious: Yes (Hospitalization)
  Sender: FDA-Public Use
  Company Number: US-ROCHE-433603

PATIENT
  Sex: Male

DRUGS (6)
  1. PEGASYS [Suspect]
     Route: 065
  2. PEGASYS [Suspect]
     Route: 065
  3. PEGASYS [Suspect]
     Route: 065
  4. COPEGUS [Suspect]
     Route: 065
  5. COPEGUS [Suspect]
     Route: 065
  6. COPEGUS [Suspect]
     Route: 065

REACTIONS (3)
  - DEPRESSION [None]
  - IMMUNODEFICIENCY [None]
  - RED BLOOD CELL COUNT DECREASED [None]
